FAERS Safety Report 7531192-3 (Version None)
Quarter: 2011Q2

REPORT INFORMATION
  Report Type: 
  Country: None (occurrence: None)
  Receive Date: 20110531
  Receipt Date: 20110517
  Transmission Date: 20111010
  Serious: Yes (Other)
  Sender: FDA-Public Use
  Company Number: B0722141A

PATIENT
  Sex: Male

DRUGS (2)
  1. PAROXETINE HYDROCHLORIDE [Suspect]
     Dosage: TRANSPLACENTARY
     Route: 064
  2. OLANZAPINE [Suspect]
     Dosage: TRANSPLACENTARY
     Route: 064

REACTIONS (8)
  - HYPOTONIA NEONATAL [None]
  - BRADYCARDIA NEONATAL [None]
  - OPISTHOTONUS [None]
  - MATERNAL DRUGS AFFECTING FOETUS [None]
  - CONVULSION NEONATAL [None]
  - RESPIRATORY DISORDER NEONATAL [None]
  - TOXICITY TO VARIOUS AGENTS [None]
  - CYANOSIS NEONATAL [None]
